FAERS Safety Report 19299549 (Version 1)
Quarter: 2021Q2

REPORT INFORMATION
  Report Type: Spontaneous
  Country: US (occurrence: US)
  Receive Date: 20210524
  Receipt Date: 20210524
  Transmission Date: 20210717
  Serious: Yes (Other)
  Sender: FDA-Public Use
  Company Number: None

PATIENT
  Age: 60 Year
  Sex: Female
  Weight: 99 kg

DRUGS (10)
  1. CETIRIZINE 10MG QAM [Concomitant]
  2. ALBUTEROL HFA 2 PUFF Q4HR PRN [Concomitant]
  3. SPIRONOLACTONE 25MG QD [Concomitant]
     Active Substance: SPIRONOLACTONE
  4. XELJANZ XR [Suspect]
     Active Substance: TOFACITINIB CITRATE
     Indication: RHEUMATOID ARTHRITIS
     Route: 048
     Dates: start: 20200518, end: 20210524
  5. FOLIC ACID 1MG QD [Concomitant]
  6. SULFASALAZINE 500MG 2 BID [Concomitant]
  7. ESTRATEST HS QD [Concomitant]
  8. DICLOFENAC SODIUM 1% APPLY 2 GM TID PRN [Concomitant]
  9. SERTRALINE 100MG QD [Concomitant]
  10. ZOLPIDEM 10MG QHS PRN [Concomitant]

REACTIONS (1)
  - Colon cancer [None]

NARRATIVE: CASE EVENT DATE: 20210521
